FAERS Safety Report 24093288 (Version 1)
Quarter: 2024Q3

REPORT INFORMATION
  Report Type: Spontaneous
  Country: US (occurrence: US)
  Receive Date: 20240715
  Receipt Date: 20240715
  Transmission Date: 20241017
  Serious: Yes (Hospitalization, Other)
  Sender: ELI LILLY AND CO
  Company Number: US-ELI_LILLY_AND_COMPANY-US202407003161

PATIENT
  Age: 49 Year

DRUGS (2)
  1. MOUNJARO [Suspect]
     Active Substance: TIRZEPATIDE
     Indication: Diabetes mellitus
     Dosage: UNK UNK, UNKNOWN
     Route: 065
     Dates: start: 202301
  2. OZEMPIC [Suspect]
     Active Substance: SEMAGLUTIDE
     Indication: Diabetes mellitus
     Dosage: UNK UNK, UNKNOWN
     Route: 065
     Dates: start: 202210, end: 202301

REACTIONS (5)
  - Chest discomfort [Unknown]
  - Intestinal obstruction [Unknown]
  - Gastrointestinal wall thickening [Unknown]
  - Internal hernia [Unknown]
  - Gastrointestinal ischaemia [Unknown]

NARRATIVE: CASE EVENT DATE: 20230610
